FAERS Safety Report 24391873 (Version 4)
Quarter: 2025Q1

REPORT INFORMATION
  Report Type: Spontaneous
  Country: JP (occurrence: JP)
  Receive Date: 20241003
  Receipt Date: 20250214
  Transmission Date: 20250408
  Serious: Yes (Life-Threatening, Hospitalization, Other)
  Sender: PFIZER
  Company Number: JP-TAKEDA-2024TJP014173

PATIENT
  Age: 69 Year
  Sex: Male
  Weight: 58.9 kg

DRUGS (10)
  1. ADCETRIS [Suspect]
     Active Substance: BRENTUXIMAB VEDOTIN
     Indication: Angioimmunoblastic T-cell lymphoma
     Dosage: 111.06 MILLIGRAM, Q3WEEKS
     Route: 041
     Dates: start: 20240730
  2. DOXORUBICIN HYDROCHLORIDE [Suspect]
     Active Substance: DOXORUBICIN HYDROCHLORIDE
     Indication: Angioimmunoblastic T-cell lymphoma
     Dosage: 84 MILLIGRAM, Q3WEEKS
     Route: 042
     Dates: start: 20240730
  3. CYCLOPHOSPHAMIDE [Suspect]
     Active Substance: CYCLOPHOSPHAMIDE
     Indication: Angioimmunoblastic T-cell lymphoma
     Dosage: 1260 MILLIGRAM, Q3WEEKS
     Route: 042
     Dates: start: 20240730
  4. PREDONINE [Suspect]
     Active Substance: PREDNISOLONE
     Indication: Angioimmunoblastic T-cell lymphoma
     Route: 065
     Dates: start: 20240730
  5. PALONOSETRON HYDROCHLORIDE [Concomitant]
     Active Substance: PALONOSETRON HYDROCHLORIDE
     Indication: Angioimmunoblastic T-cell lymphoma
     Route: 065
     Dates: start: 20240730
  6. FOSNETUPITANT CHLORIDE HYDROCHLORIDE [Concomitant]
     Active Substance: FOSNETUPITANT CHLORIDE HYDROCHLORIDE
     Indication: Angioimmunoblastic T-cell lymphoma
     Route: 065
     Dates: start: 20240730
  7. FILGRASTIM [Concomitant]
     Active Substance: FILGRASTIM
     Indication: Colony stimulating factor therapy
     Route: 065
     Dates: start: 20240730
  8. FILGRASTIM [Concomitant]
     Active Substance: FILGRASTIM
     Indication: Angioimmunoblastic T-cell lymphoma
  9. VIMPAT [Concomitant]
     Active Substance: LACOSAMIDE
     Indication: Epilepsy
     Route: 065
     Dates: start: 20240730
  10. LEVETIRACETAM [Concomitant]
     Active Substance: LEVETIRACETAM
     Indication: Epilepsy
     Route: 065
     Dates: start: 20240730

REACTIONS (4)
  - Epilepsy [Recovering/Resolving]
  - Epilepsy [Recovered/Resolved]
  - Febrile neutropenia [Recovering/Resolving]
  - Cerebral infarction [Unknown]

NARRATIVE: CASE EVENT DATE: 20240808
